FAERS Safety Report 22208412 (Version 1)
Quarter: 2023Q2

REPORT INFORMATION
  Report Type: Spontaneous
  Country: DK (occurrence: DK)
  Receive Date: 20230413
  Receipt Date: 20230413
  Transmission Date: 20230722
  Serious: Yes (Other)
  Sender: FDA-Public Use
  Company Number: DK-MYLANLABS-2023M1039055

PATIENT
  Age: 51 Year
  Sex: Male

DRUGS (3)
  1. CETIRIZINE [Suspect]
     Active Substance: CETIRIZINE HYDROCHLORIDE
     Indication: Schnitzler^s syndrome
     Dosage: 10 MILLIGRAM, QD
     Route: 048
  2. PENICILLIN G [Suspect]
     Active Substance: PENICILLIN G
     Indication: Schnitzler^s syndrome
     Dosage: UNK UNK, QID; THE PATIENT RECEIVED IV BENZYLPENICILLIN 1.2MILLION UNITS FOUR TIMES DAILY
     Route: 042
  3. OMALIZUMAB [Suspect]
     Active Substance: OMALIZUMAB
     Indication: Schnitzler^s syndrome
     Dosage: 300 MILLIGRAM, Q28D
     Route: 058

REACTIONS (2)
  - Drug ineffective [Unknown]
  - Disease progression [Unknown]
